FAERS Safety Report 7948432-9 (Version None)
Quarter: 2011Q4

REPORT INFORMATION
  Report Type: 
  Country: None (occurrence: None)
  Receive Date: 20111130
  Receipt Date: 20111117
  Transmission Date: 20120403
  Serious: Yes (Death, Other)
  Sender: FDA-Public Use
  Company Number: US-CELGENEUS-163-21880-11100073

PATIENT
  Sex: Male

DRUGS (13)
  1. VINCRISTINE [Concomitant]
     Indication: MULTIPLE MYELOMA
     Route: 065
     Dates: start: 20110401
  2. ESTRADIOL [Concomitant]
     Indication: MULTIPLE MYELOMA
     Route: 065
     Dates: start: 20110401
  3. ZOLOFT [Concomitant]
     Route: 065
  4. ZOFRAN [Concomitant]
     Route: 065
  5. REVLIMID [Suspect]
     Dosage: 15 MILLIGRAM
     Route: 048
     Dates: start: 20110801, end: 20110801
  6. AMBIEN [Concomitant]
     Route: 065
  7. BLOOD THINNERS [Concomitant]
     Route: 065
  8. REVLIMID [Suspect]
     Indication: MULTIPLE MYELOMA
     Dosage: 25 MILLIGRAM
     Route: 048
     Dates: start: 20110401
  9. ZOMETA [Concomitant]
     Route: 065
  10. VALTREX [Concomitant]
     Route: 065
  11. COMPAZINE [Concomitant]
     Route: 065
  12. DEXAMETHASONE [Concomitant]
     Indication: MULTIPLE MYELOMA
     Dosage: 40 MILLIGRAM
     Route: 065
     Dates: start: 20110401
  13. COUMADIN [Concomitant]
     Indication: THROMBOSIS PROPHYLAXIS
     Route: 065

REACTIONS (2)
  - MULTIPLE MYELOMA [None]
  - CEREBROVASCULAR ACCIDENT [None]
